FAERS Safety Report 6380696-8 (Version None)
Quarter: 2009Q3

REPORT INFORMATION
  Report Type: 
  Country: None (occurrence: None)
  Receive Date: 20090929
  Receipt Date: 20090909
  Transmission Date: 20100115
  Serious: Yes (Other)
  Sender: FDA-Public Use
  Company Number: US-BAYER-200933661NA

PATIENT
  Age: 45 Year
  Sex: Female

DRUGS (3)
  1. MAGNEVIST [Suspect]
     Indication: DRUG USE FOR UNKNOWN INDICATION
     Dosage: AS USED: 15 ML
     Route: 042
     Dates: start: 20070815, end: 20070815
  2. LUMIREM [Suspect]
     Indication: DRUG USE FOR UNKNOWN INDICATION
     Dosage: ^SINGLE DOSE^
     Route: 048
     Dates: start: 20070815, end: 20070815
  3. HYOSCINE HBR HYT [Concomitant]

REACTIONS (7)
  - ANGIOEDEMA [None]
  - CONDITION AGGRAVATED [None]
  - DRUG HYPERSENSITIVITY [None]
  - ERYTHEMA [None]
  - FOOD ALLERGY [None]
  - SKIN REACTION [None]
  - URTICARIA [None]
